FAERS Safety Report 10191104 (Version 5)
Quarter: 2016Q3

REPORT INFORMATION
  Report Type: Report from Study
  Country: IL (occurrence: IL)
  Receive Date: 20140523
  Receipt Date: 20160713
  Transmission Date: 20161108
  Serious: Yes (Hospitalization)
  Sender: FDA-Public Use
  Company Number: PHHY2014IL062680

PATIENT
  Age: 52 Year
  Sex: Female

DRUGS (2)
  1. GADOLINIUM [Concomitant]
     Active Substance: GADOLINIUM
     Indication: PRODUCT USED FOR UNKNOWN INDICATION
     Dosage: UNK
     Route: 065
  2. GILENYA [Suspect]
     Active Substance: FINGOLIMOD HYDROCHLORIDE
     Indication: MULTIPLE SCLEROSIS
     Dosage: 0.5 MG, QD
     Route: 048
     Dates: start: 20121009, end: 20160114

REACTIONS (10)
  - Procedural complication [Recovering/Resolving]
  - Intestinal obstruction [Recovering/Resolving]
  - Malnutrition [Recovering/Resolving]
  - Protein deficiency [Recovering/Resolving]
  - Abdominal distension [Unknown]
  - Postoperative wound infection [Recovering/Resolving]
  - Cholecystitis acute [Recovering/Resolving]
  - Abdominal pain [Recovering/Resolving]
  - Cholelithiasis [Recovering/Resolving]
  - Toxicity to various agents [Recovered/Resolved]

NARRATIVE: CASE EVENT DATE: 201405
